FAERS Safety Report 5319485-1 (Version None)
Quarter: 2007Q2

REPORT INFORMATION
  Report Type: 
  Country: None (occurrence: None)
  Receive Date: 20070508
  Receipt Date: 20070427
  Transmission Date: 20071010
  Serious: Yes (Other)
  Sender: FDA-Public Use
  Company Number: IE-PFIZER INC-2007032206

PATIENT
  Age: 49 Year
  Sex: Female

DRUGS (5)
  1. LIPITOR [Suspect]
     Indication: HYPERCHOLESTEROLAEMIA
     Route: 048
     Dates: start: 20061228, end: 20070416
  2. ESTRADIOL VALERATE [Concomitant]
     Indication: HORMONE REPLACEMENT THERAPY
     Route: 048
  3. DETRUSITOL [Concomitant]
     Indication: MICTURITION URGENCY
     Route: 048
     Dates: start: 20040101
  4. AMITRIPTYLINE HCL [Concomitant]
     Route: 048
     Dates: start: 20060101
  5. ARTHROTEC [Concomitant]
     Indication: FIBROMYALGIA
     Route: 048
     Dates: start: 20050101

REACTIONS (4)
  - FIBROMYALGIA [None]
  - MUSCLE SPASMS [None]
  - MYALGIA [None]
  - PAIN IN EXTREMITY [None]
